FAERS Safety Report 8230329-0 (Version None)
Quarter: 2012Q1

REPORT INFORMATION
  Report Type: 
  Country: None (occurrence: None)
  Receive Date: 20120323
  Receipt Date: 20120316
  Transmission Date: 20120608
  Serious: Yes (Other)
  Sender: FDA-Public Use
  Company Number: JP-JNJFOC-20120309064

PATIENT
  Age: 56 Year
  Sex: Female

DRUGS (7)
  1. METHOTREXATE [Concomitant]
     Indication: RHEUMATOID ARTHRITIS
     Route: 048
     Dates: start: 20110101, end: 20120301
  2. SIMPONI [Suspect]
     Route: 058
     Dates: start: 20120110
  3. SIMPONI [Suspect]
     Route: 058
     Dates: start: 20111008
  4. SIMPONI [Suspect]
     Indication: RHEUMATOID ARTHRITIS
     Route: 058
     Dates: start: 20111115
  5. PREDNISONE TAB [Concomitant]
     Indication: RHEUMATOID ARTHRITIS
     Route: 048
     Dates: start: 20110101, end: 20120301
  6. SIMPONI [Suspect]
     Route: 058
     Dates: start: 20120207
  7. SIMPONI [Suspect]
     Route: 058
     Dates: start: 20111213

REACTIONS (1)
  - GASTROENTERITIS [None]
